FAERS Safety Report 18602082 (Version 14)
Quarter: 2022Q4

REPORT INFORMATION
  Report Type: Report from Study
  Country: AR (occurrence: AR)
  Receive Date: 20201210
  Receipt Date: 20221021
  Transmission Date: 20230113
  Serious: Yes (Hospitalization, Other)
  Sender: FDA-Public Use
  Company Number: NVSC2020AR005851

PATIENT
  Age: 66 Year
  Sex: Female

DRUGS (14)
  1. KISQALI [Suspect]
     Active Substance: RIBOCICLIB
     Indication: Breast cancer metastatic
     Dosage: 300 MG, QD
     Route: 065
     Dates: start: 20191114
  2. KISQALI [Suspect]
     Active Substance: RIBOCICLIB
     Dosage: 600 MG, QD
     Route: 065
     Dates: start: 20191114
  3. KISQALI [Suspect]
     Active Substance: RIBOCICLIB
     Dosage: 200 MG, QD (STARTED 4 DAYS AGO)
     Route: 048
     Dates: start: 20191114
  4. KISQALI [Suspect]
     Active Substance: RIBOCICLIB
     Dosage: UNK UNK, QD
     Route: 048
     Dates: start: 20191114
  5. KISQALI [Suspect]
     Active Substance: RIBOCICLIB
     Dosage: UNK
     Route: 048
     Dates: start: 20210107
  6. KISQALI [Suspect]
     Active Substance: RIBOCICLIB
     Dosage: 25 MG, QD
     Route: 048
     Dates: start: 20191114
  7. KISQALI [Suspect]
     Active Substance: RIBOCICLIB
     Dosage: 200 MG, QD
     Route: 048
     Dates: start: 20191114
  8. KISQALI [Suspect]
     Active Substance: RIBOCICLIB
     Dosage: 200 MG, QD
     Route: 048
  9. VALSARTAN [Concomitant]
     Active Substance: VALSARTAN
     Indication: Product used for unknown indication
     Dosage: 80 MG, QD (MANY YEARS AGO)
     Route: 065
  10. LETROZOLE [Concomitant]
     Active Substance: LETROZOLE
     Indication: Product used for unknown indication
     Dosage: 2.5 MG, QD
     Route: 065
     Dates: start: 201911
  11. METFORMIN [Concomitant]
     Active Substance: METFORMIN HYDROCHLORIDE
     Indication: Product used for unknown indication
     Dosage: 500 MG, BID
     Route: 065
     Dates: start: 2008
  12. METFORMIN [Concomitant]
     Active Substance: METFORMIN HYDROCHLORIDE
     Dosage: 500 MG, BID
     Route: 065
     Dates: start: 2009
  13. ESCITALOPRAM OXALATE [Concomitant]
     Active Substance: ESCITALOPRAM OXALATE
     Indication: Product used for unknown indication
     Dosage: 10 UNK (MANY YEARS AGO)
     Route: 065
  14. NEURIL [Concomitant]
     Indication: Product used for unknown indication
     Dosage: 1 MG (AT NIGHT)
     Route: 065
     Dates: start: 1995

REACTIONS (29)
  - Renal disorder [Unknown]
  - Anaemia [Unknown]
  - Vitamin D decreased [Not Recovered/Not Resolved]
  - Blood creatinine increased [Unknown]
  - Platelet count decreased [Not Recovered/Not Resolved]
  - Proteinuria [Unknown]
  - Micturition disorder [Unknown]
  - Calcium deficiency [Unknown]
  - Renal failure [Unknown]
  - Azotaemia [Unknown]
  - Lower limb fracture [Unknown]
  - Full blood count abnormal [Not Recovered/Not Resolved]
  - Fall [Not Recovered/Not Resolved]
  - Contusion [Not Recovered/Not Resolved]
  - Skin fissures [Not Recovered/Not Resolved]
  - Limb injury [Not Recovered/Not Resolved]
  - Hypokinesia [Not Recovered/Not Resolved]
  - Gastrointestinal disorder [Unknown]
  - Nausea [Unknown]
  - Colitis [Unknown]
  - Feeling abnormal [Unknown]
  - Weight decreased [Unknown]
  - Muscle spasms [Unknown]
  - Bone disorder [Unknown]
  - Vomiting [Unknown]
  - Dizziness [Unknown]
  - Balance disorder [Unknown]
  - Inappropriate schedule of product administration [Unknown]
  - Gait disturbance [Unknown]

NARRATIVE: CASE EVENT DATE: 20200101
